FAERS Safety Report 12381416 (Version 8)
Quarter: 2017Q4

REPORT INFORMATION
  Report Type: Report from Study
  Country: US (occurrence: US)
  Receive Date: 20160518
  Receipt Date: 20171011
  Transmission Date: 20180320
  Serious: Yes (Hospitalization, Other)
  Sender: FDA-Public Use
  Company Number: US-JNJFOC-20160311224

PATIENT
  Age: 72 Year
  Sex: Female

DRUGS (17)
  1. IMBRUVICA [Suspect]
     Active Substance: IBRUTINIB
     Indication: NEOPLASM MALIGNANT
     Route: 048
     Dates: start: 20170220
  2. ZANTAC [Concomitant]
     Active Substance: RANITIDINE HYDROCHLORIDE
  3. LORAZEPAM. [Concomitant]
     Active Substance: LORAZEPAM
  4. IMBRUVICA [Suspect]
     Active Substance: IBRUTINIB
     Indication: MANTLE CELL LYMPHOMA
     Route: 048
     Dates: start: 2016, end: 2016
  5. TRAZODONE [Concomitant]
     Active Substance: TRAZODONE HYDROCHLORIDE
  6. IMBRUVICA [Suspect]
     Active Substance: IBRUTINIB
     Indication: NEOPLASM MALIGNANT
     Route: 048
     Dates: start: 20160220, end: 20160309
  7. ALENDRONATE SODIUM. [Concomitant]
     Active Substance: ALENDRONATE SODIUM
  8. CALCIUM CARBONATE. [Concomitant]
     Active Substance: CALCIUM CARBONATE
  9. IMBRUVICA [Suspect]
     Active Substance: IBRUTINIB
     Indication: MANTLE CELL LYMPHOMA
     Route: 048
     Dates: start: 20170220
  10. IMBRUVICA [Suspect]
     Active Substance: IBRUTINIB
     Indication: NEOPLASM MALIGNANT
     Route: 048
     Dates: start: 20170220
  11. LISINOPRIL. [Concomitant]
     Active Substance: LISINOPRIL
  12. IMBRUVICA [Suspect]
     Active Substance: IBRUTINIB
     Indication: MANTLE CELL LYMPHOMA
     Route: 048
     Dates: start: 201603, end: 20160320
  13. IMBRUVICA [Suspect]
     Active Substance: IBRUTINIB
     Indication: MANTLE CELL LYMPHOMA
     Route: 048
     Dates: start: 20170220
  14. FERROUS SULFATE. [Concomitant]
     Active Substance: FERROUS SULFATE
  15. IMBRUVICA [Suspect]
     Active Substance: IBRUTINIB
     Indication: NEOPLASM MALIGNANT
     Route: 048
     Dates: start: 2016, end: 2016
  16. IMBRUVICA [Suspect]
     Active Substance: IBRUTINIB
     Indication: NEOPLASM MALIGNANT
     Route: 048
     Dates: start: 201603, end: 20160320
  17. IMBRUVICA [Suspect]
     Active Substance: IBRUTINIB
     Indication: MANTLE CELL LYMPHOMA
     Route: 048
     Dates: start: 20160220, end: 20160309

REACTIONS (29)
  - Drug eruption [Unknown]
  - Swelling [Unknown]
  - Ear neoplasm [Unknown]
  - Hypothyroidism [Unknown]
  - Skin abrasion [Recovered/Resolved]
  - Cystitis [Unknown]
  - Adverse drug reaction [Unknown]
  - Bacterial infection [Recovered/Resolved]
  - Cough [Unknown]
  - Laceration [Recovering/Resolving]
  - Peripheral swelling [Not Recovered/Not Resolved]
  - Asthenia [Unknown]
  - Pain in extremity [Not Recovered/Not Resolved]
  - Amnesia [Unknown]
  - Pyrexia [Recovering/Resolving]
  - Face injury [Unknown]
  - Fall [Unknown]
  - Dehydration [Unknown]
  - Gait disturbance [Unknown]
  - Urinary incontinence [Unknown]
  - Brain neoplasm [Unknown]
  - Head titubation [Unknown]
  - Disturbance in attention [Unknown]
  - Lethargy [Unknown]
  - Constipation [Recovering/Resolving]
  - Dysstasia [Unknown]
  - Head injury [Unknown]
  - Parkinson^s disease [Not Recovered/Not Resolved]
  - Decreased appetite [Unknown]

NARRATIVE: CASE EVENT DATE: 2016
